FAERS Safety Report 6252594-1 (Version None)
Quarter: 2009Q2

REPORT INFORMATION
  Report Type: 
  Country: None (occurrence: None)
  Receive Date: 20090629
  Receipt Date: 20090629
  Transmission Date: 20091009
  Serious: Yes (Other)
  Sender: FDA-Public Use
  Company Number: None

PATIENT
  Sex: Female
  Weight: 92.0802 kg

DRUGS (2)
  1. CLARITIN-D 24 HOUR [Suspect]
     Indication: EAR INFECTION
     Dosage: TABLET LORATINE 10MG PSUEDOEP SULFATE 240 MG 1 TABLET EVERY 24 HOUR FOR 5 DAYS
     Dates: start: 20090501
  2. CLARITIN-D 24 HOUR [Suspect]
     Indication: MULTIPLE ALLERGIES
     Dosage: TABLET LORATINE 10MG PSUEDOEP SULFATE 240 MG 1 TABLET EVERY 24 HOUR FOR 5 DAYS
     Dates: start: 20090501

REACTIONS (4)
  - ABNORMAL DREAMS [None]
  - AGGRESSION [None]
  - AGITATION [None]
  - ANGER [None]
